FAERS Safety Report 16787717 (Version 2)
Quarter: 2020Q1

REPORT INFORMATION
  Report Type: Spontaneous
  Country: CA (occurrence: CA)
  Receive Date: 20190909
  Receipt Date: 20200210
  Transmission Date: 20200409
  Serious: Yes (Life-Threatening, Hospitalization, Other)
  Sender: FDA-Public Use
  Company Number: CA-PFIZER INC-2019388979

PATIENT
  Age: 52 Year
  Sex: Male

DRUGS (24)
  1. LORAZEPAM. [Interacting]
     Active Substance: LORAZEPAM
     Dosage: 1 MG, UNK
     Route: 048
  2. MORPHINE SULFATE. [Interacting]
     Active Substance: MORPHINE SULFATE
     Dosage: 9500 MG, UNK
  3. CIPRALEX [Interacting]
     Active Substance: ESCITALOPRAM OXALATE
     Dosage: 10 MG, UNK
     Route: 065
  4. OXYCODONE [Interacting]
     Active Substance: OXYCODONE
     Dosage: UNK
     Route: 048
  5. OXYCODONE [Interacting]
     Active Substance: OXYCODONE
     Dosage: 20 MG, UNK
     Route: 048
  6. ALTACE [Suspect]
     Active Substance: RAMIPRIL
     Dosage: UNK
  7. MORPHINE SULFATE. [Interacting]
     Active Substance: MORPHINE SULFATE
     Indication: DEPRESSION
     Dosage: 30 MG, 1X/DAY
  8. MORPHINE SULFATE. [Interacting]
     Active Substance: MORPHINE SULFATE
     Dosage: 420 MG, UNK
  9. MORPHINE SULFATE. [Interacting]
     Active Substance: MORPHINE SULFATE
     Dosage: 15 MG, UNK
  10. ZOPICLONE [Interacting]
     Active Substance: ZOPICLONE
     Dosage: 15 MG, QD
     Route: 048
  11. MORPHINE SULFATE. [Interacting]
     Active Substance: MORPHINE SULFATE
     Indication: SPINAL STENOSIS
     Dosage: 100 MG, UNK
  12. CIPRALEX [Interacting]
     Active Substance: ESCITALOPRAM OXALATE
     Indication: DEPRESSION
     Dosage: 10 MG, QD
     Route: 065
  13. OXYCODONE [Interacting]
     Active Substance: OXYCODONE
     Indication: SPINAL STENOSIS
     Dosage: 10 MG, UNK
  14. CITALOPRAM [Interacting]
     Active Substance: CITALOPRAM HYDROBROMIDE
     Dosage: UNK
     Route: 048
  15. CIPRALEX [Interacting]
     Active Substance: ESCITALOPRAM OXALATE
     Dosage: 140 MG, UNK
     Route: 048
  16. ZOPICLONE [Interacting]
     Active Substance: ZOPICLONE
     Indication: INSOMNIA
     Dosage: 7.5 MG, UNK
  17. MORPHINE SULFATE. [Interacting]
     Active Substance: MORPHINE SULFATE
     Dosage: 30 MG, UNK
  18. OXYCODONE [Interacting]
     Active Substance: OXYCODONE
     Dosage: UNK
  19. DIAZEPAM. [Interacting]
     Active Substance: DIAZEPAM
     Indication: SPINAL STENOSIS
     Dosage: 1800 MG, UNK
     Route: 048
  20. LORAZEPAM. [Interacting]
     Active Substance: LORAZEPAM
     Indication: INSOMNIA
     Dosage: 30 MG, UNK
     Route: 048
  21. ZOPICLONE [Interacting]
     Active Substance: ZOPICLONE
     Dosage: 187.5 MG, UNK
     Route: 048
  22. ACETAMINOPHEN;OXYCODONE HYDROCHLORIDE [Interacting]
     Active Substance: ACETAMINOPHEN\OXYCODONE HYDROCHLORIDE
     Dosage: UNK
     Route: 048
  23. DIAZEPAM. [Interacting]
     Active Substance: DIAZEPAM
     Indication: SPINAL STENOSIS
     Dosage: 10 MG, UNK
     Route: 065
  24. MORPHINE SULFATE. [Interacting]
     Active Substance: MORPHINE SULFATE
     Dosage: 2640 MG, UNK

REACTIONS (22)
  - Intentional overdose [Unknown]
  - Coma scale abnormal [Unknown]
  - Oxygen saturation decreased [Unknown]
  - Drug screen positive [Unknown]
  - Electrocardiogram QT prolonged [Unknown]
  - Suicide attempt [Unknown]
  - Heart rate decreased [Unknown]
  - Hypotension [Unknown]
  - Blood pressure decreased [Unknown]
  - Sinus tachycardia [Unknown]
  - Hyperkalaemia [Unknown]
  - Electrocardiogram abnormal [Unknown]
  - Overdose [Unknown]
  - Coma [Unknown]
  - Opiates positive [Unknown]
  - Blood creatine phosphokinase increased [Unknown]
  - Blood potassium increased [Unknown]
  - Mechanical ventilation [Unknown]
  - Blood creatinine increased [Unknown]
  - Bradycardia [Unknown]
  - Drug interaction [Unknown]
  - Loss of consciousness [Unknown]
